FAERS Safety Report 6992176-7 (Version None)
Quarter: 2010Q3

REPORT INFORMATION
  Report Type: 
  Country: None (occurrence: None)
  Receive Date: 20100917
  Receipt Date: 20100726
  Transmission Date: 20110219
  Serious: No
  Sender: FDA-Public Use
  Company Number: A0872323A

PATIENT
  Age: 58 Year
  Sex: Male

DRUGS (7)
  1. PROMACTA [Suspect]
     Dosage: 25MG PER DAY
     Route: 048
     Dates: start: 20100722
  2. CAPTOPRESS [Concomitant]
  3. LOPRESSOR [Concomitant]
  4. LISINOPRIL [Concomitant]
  5. INSULIN [Concomitant]
  6. UNKNOWN [Concomitant]
  7. STEROIDS [Concomitant]

REACTIONS (3)
  - MOUTH ULCERATION [None]
  - STOMATITIS [None]
  - TONGUE ULCERATION [None]
